FAERS Safety Report 5739402-X (Version None)
Quarter: 2008Q2

REPORT INFORMATION
  Report Type: 
  Country: None (occurrence: None)
  Receive Date: 20080515
  Receipt Date: 20080505
  Transmission Date: 20081010
  Serious: Yes (Other)
  Sender: FDA-Public Use
  Company Number: US-PFIZER INC-2008017157

PATIENT
  Sex: Female
  Weight: 54 kg

DRUGS (3)
  1. CHANTIX [Suspect]
     Indication: SMOKING CESSATION THERAPY
     Dates: start: 20080103, end: 20080229
  2. NAPROSYN [Concomitant]
  3. NUVARING [Concomitant]

REACTIONS (6)
  - ABNORMAL DREAMS [None]
  - AMNESIA [None]
  - ANGER [None]
  - HALLUCINATION [None]
  - NIGHTMARE [None]
  - TREMOR [None]
